FAERS Safety Report 13528735 (Version 3)
Quarter: 2017Q3

REPORT INFORMATION
  Report Type: Spontaneous
  Country: US (occurrence: US)
  Receive Date: 20170509
  Receipt Date: 20170810
  Transmission Date: 20171127
  Serious: Yes (Other)
  Sender: FDA-Public Use
  Company Number: US-PFIZER INC-2017203817

PATIENT
  Age: 75 Year
  Sex: Female
  Weight: 82.1 kg

DRUGS (11)
  1. VITAMIN D [Concomitant]
     Active Substance: CHOLECALCIFEROL
     Indication: DIABETIC NEPHROPATHY
     Dosage: 1000 UNITS BY MOUTH ONCE A DAY
     Route: 048
  2. SYNTHROID [Concomitant]
     Active Substance: LEVOTHYROXINE SODIUM
     Indication: THYROID DISORDER
     Dosage: 0.075MG BY MOUTH 6 DAYS A WEEK
     Route: 048
     Dates: start: 1965
  3. FUROSEMIDE. [Concomitant]
     Active Substance: FUROSEMIDE
     Indication: FLUID RETENTION
     Dosage: 20MG TABLET ONE HALF TABLET BY MOUTH EVERY OTHER DAY
     Route: 048
     Dates: start: 20160120
  4. ASPIRIN 81 [Concomitant]
     Active Substance: ASPIRIN
     Indication: PROPHYLAXIS
     Dosage: 81MG BY MOUTH ONCE A DAY
     Route: 048
  5. XELJANZ XR [Suspect]
     Active Substance: TOFACITINIB CITRATE
     Dosage: 11 MG, DAILY
     Route: 048
     Dates: start: 2017
  6. ULORIC [Concomitant]
     Active Substance: FEBUXOSTAT
     Indication: BLOOD URIC ACID ABNORMAL
     Dosage: 80 MG, 1X/DAY
     Route: 048
  7. NOVOLIN [Suspect]
     Active Substance: INSULIN HUMAN
     Indication: DIABETES MELLITUS
     Dosage: 80 IU, DAILY (50UNITS IN THE MORNING AND 30UNITS AT NIGHT INJECTION)
  8. METOPROLOL. [Concomitant]
     Active Substance: METOPROLOL
     Indication: BLOOD PRESSURE ABNORMAL
     Dosage: 25MG TABLET BY MOUTH TWICE A DAY
     Route: 048
  9. FUROSEMIDE. [Concomitant]
     Active Substance: FUROSEMIDE
     Indication: PERIPHERAL SWELLING
  10. XELJANZ XR [Suspect]
     Active Substance: TOFACITINIB CITRATE
     Indication: RHEUMATOID ARTHRITIS
     Dosage: 11MG  ONCE A DAY
     Route: 048
     Dates: start: 20170310
  11. LOSARTAN. [Concomitant]
     Active Substance: LOSARTAN
     Indication: BLOOD PRESSURE ABNORMAL
     Dosage: 100MG TABLET BY MOUTH ONCE A DAY
     Route: 048

REACTIONS (3)
  - Blood glucose decreased [Recovering/Resolving]
  - Drug ineffective [Unknown]
  - Pneumonia [Unknown]

NARRATIVE: CASE EVENT DATE: 201704
